FAERS Safety Report 18285373 (Version 1)
Quarter: 2020Q3

REPORT INFORMATION
  Report Type: Spontaneous
  Country: CA (occurrence: CA)
  Receive Date: 20200918
  Receipt Date: 20200918
  Transmission Date: 20201103
  Serious: Yes (Hospitalization, Other)
  Sender: FDA-Public Use
  Company Number: CA-BAYER-2020-198023

PATIENT
  Sex: Female

DRUGS (43)
  1. BIFIDOBACTERIUM ANIMALIS SUBSP. LACTIS [Suspect]
     Active Substance: BIFIDOBACTERIUM ANIMALIS LACTIS
  2. NORTRIPTYLINE HYDROCHLORIDE. [Suspect]
     Active Substance: NORTRIPTYLINE HYDROCHLORIDE
  3. DOCOSAHEXAENOIC ACID [Suspect]
     Active Substance: DOCONEXENT
  4. VITAMIN B COMPLEX [Suspect]
     Active Substance: CYANOCOBALAMIN\DEXPANTHENOL\NIACINAMIDE\PYRIDOXINE HYDROCHLORIDE\RIBOFLAVIN 5^-PHOSPHATE SODIUM\THIAMINE HYDROCHLORIDE\VITAMIN B COMPLEX
  5. ERGOCALCIFEROL. [Suspect]
     Active Substance: ERGOCALCIFEROL
  6. D?ALPHA TOCOPHEROL [Suspect]
     Active Substance: .ALPHA.-TOCOPHEROL, D-
  7. ALENDRONATE SODIUM. [Suspect]
     Active Substance: ALENDRONATE SODIUM
  8. ATIVAN [Suspect]
     Active Substance: LORAZEPAM
  9. WARFARIN [Suspect]
     Active Substance: WARFARIN
  10. ANTITHYMOCYTE IMMUNOGLOBULIN [Suspect]
     Active Substance: THYMOCYTE IMMUNE GLOBULIN NOS
  11. APO?BACLOFEN [Suspect]
     Active Substance: BACLOFEN
  12. DULOXETINE HYDROCHLORIDE. [Suspect]
     Active Substance: DULOXETINE HYDROCHLORIDE
  13. EXALGO [Suspect]
     Active Substance: HYDROMORPHONE HYDROCHLORIDE
  14. POTASSIUM CHLORIDE. [Suspect]
     Active Substance: POTASSIUM CHLORIDE
  15. NICOTINAMIDE [Suspect]
     Active Substance: NIACINAMIDE
  16. BACLOFEN. [Suspect]
     Active Substance: BACLOFEN
  17. CALCIUM CARBONATE. [Suspect]
     Active Substance: CALCIUM CARBONATE
  18. IMODIUM [Suspect]
     Active Substance: LOPERAMIDE HYDROCHLORIDE
  19. PREDNISONE. [Suspect]
     Active Substance: PREDNISONE
  20. SULFA + TRIME + GUAIFENESINA [Suspect]
     Active Substance: GUAIFENESIN\SULFAMETHOXAZOLE\TRIMETHOPRIM
  21. ASCORBIC ACID. [Suspect]
     Active Substance: ASCORBIC ACID
  22. APO?CAL [Suspect]
     Active Substance: CALCIUM CARBONATE
  23. DEXPANTHENOL. [Suspect]
     Active Substance: DEXPANTHENOL
  24. DOCUSATE SODIUM. [Suspect]
     Active Substance: DOCUSATE SODIUM
  25. MYCOPHENOLATE MOFETIL. [Suspect]
     Active Substance: MYCOPHENOLATE MOFETIL
  26. OMEGA?3 MARINE TRIGLYCERIDES [Suspect]
     Active Substance: OMEGA-3-ACID ETHYL ESTERS
  27. ZANTAC [Suspect]
     Active Substance: RANITIDINE HYDROCHLORIDE
  28. CYANOCOBALAMIN. [Suspect]
     Active Substance: CYANOCOBALAMIN
  29. LORATADINE. [Suspect]
     Active Substance: LORATADINE
     Indication: PRODUCT USED FOR UNKNOWN INDICATION
  30. CALCIUM [Suspect]
     Active Substance: CALCIUM
  31. FUROSEMIDE. [Suspect]
     Active Substance: FUROSEMIDE
  32. NOVO?HYDRAZIDE [Suspect]
     Active Substance: HYDROCHLOROTHIAZIDE
  33. MELATONIN [Suspect]
     Active Substance: MELATONIN
  34. NASONEX [Suspect]
     Active Substance: MOMETASONE FUROATE
  35. MULTIVITAMINUM [Suspect]
     Active Substance: VITAMINS
  36. ZOPICLONE [Suspect]
     Active Substance: ZOPICLONE
  37. LACTOBACILLUS ACIDOPHILUS [Suspect]
     Active Substance: LACTOBACILLUS ACIDOPHILUS
  38. MOMETASONE [Suspect]
     Active Substance: MOMETASONE
  39. SULFAMETHOXAZOLE [Suspect]
     Active Substance: SULFAMETHOXAZOLE
  40. PYRIDOXINE HYDROCHLORIDE. [Suspect]
     Active Substance: PYRIDOXINE HYDROCHLORIDE
  41. APO?ZOPICLONE [Suspect]
     Active Substance: ZOPICLONE
  42. LYRICA [Suspect]
     Active Substance: PREGABALIN
  43. TIZANIDINE HYDROCHLORIDE. [Suspect]
     Active Substance: TIZANIDINE HYDROCHLORIDE

REACTIONS (4)
  - Coma [Not Recovered/Not Resolved]
  - Somnolence [Not Recovered/Not Resolved]
  - Pneumonia aspiration [Not Recovered/Not Resolved]
  - Gastrooesophageal reflux disease [Not Recovered/Not Resolved]
